FAERS Safety Report 6170742-9 (Version None)
Quarter: 2009Q2

REPORT INFORMATION
  Report Type: 
  Country: None (occurrence: None)
  Receive Date: 20090427
  Receipt Date: 20090413
  Transmission Date: 20091009
  Serious: Yes (Hospitalization)
  Sender: FDA-Public Use
  Company Number: ADE# 09-070DPR

PATIENT
  Age: 70 Year
  Sex: Male

DRUGS (12)
  1. DIGOXIN [Suspect]
     Indication: ATRIAL FIBRILLATION
  2. . [Concomitant]
  3. GEMFIBROZIL [Concomitant]
  4. CARVEDILOL [Concomitant]
  5. NEXIUM [Concomitant]
  6. AVAPRO [Concomitant]
  7. PLAVIX [Concomitant]
  8. LISINOPRIL [Concomitant]
  9. SIMVASTATIN [Concomitant]
  10. LANTUS [Concomitant]
  11. INSULIN [Concomitant]
  12. NOVOLOG [Concomitant]

REACTIONS (2)
  - CEREBROVASCULAR ACCIDENT [None]
  - SYNCOPE [None]
